FAERS Safety Report 9524170 (Version 1)
Quarter: 2013Q1

REPORT INFORMATION
  Report Type: Spontaneous
  Country: US (occurrence: None)
  Receive Date: 20130305
  Receipt Date: 20130305
  Transmission Date: 20140127
  Serious: Yes (Other)
  Sender: FDA-Public Use
  Company Number: 163-21880-12022501

PATIENT
  Age: 59 Year
  Sex: Female
  Weight: 134.72 kg

DRUGS (2)
  1. REVLIMID (LENALIDOMIDE) (CAPSULES) [Suspect]
     Indication: PLASMA CELL MYELOMA
     Dosage: 25 MG, DAILY X 21 DAYS, PO
     Route: 048
     Dates: start: 20120208, end: 20120212
  2. DECADRON [Concomitant]

REACTIONS (5)
  - Drug hypersensitivity [None]
  - Pharyngeal oedema [None]
  - Urticaria [None]
  - Oedema peripheral [None]
  - Dysphonia [None]
